FAERS Safety Report 14699282 (Version 4)
Quarter: 2018Q3

REPORT INFORMATION
  Report Type: Spontaneous
  Country: AT (occurrence: AT)
  Receive Date: 20180330
  Receipt Date: 20180913
  Transmission Date: 20181010
  Serious: Yes (Death, Other)
  Sender: FDA-Public Use
  Company Number: AT-MYLANLABS-2018M1018448

PATIENT
  Sex: Female

DRUGS (14)
  1. DEXAMETHASONE. [Suspect]
     Active Substance: DEXAMETHASONE
     Indication: EPSTEIN-BARR VIRUS INFECTION
  2. INFLIXIMAB [Suspect]
     Active Substance: INFLIXIMAB
     Indication: HISTIOCYTOSIS HAEMATOPHAGIC
     Dosage: UNK
     Dates: start: 2008
  3. CIDOFOVIR. [Suspect]
     Active Substance: CIDOFOVIR
     Indication: EPSTEIN-BARR VIRUS INFECTION
  4. DEXAMETHASONE. [Suspect]
     Active Substance: DEXAMETHASONE
     Indication: HISTIOCYTOSIS HAEMATOPHAGIC
     Dosage: UNK
     Route: 065
  5. RITUXIMAB. [Suspect]
     Active Substance: RITUXIMAB
     Indication: EPSTEIN-BARR VIRUS INFECTION
  6. HUMAN IMMUNOGLBULIN [Suspect]
     Active Substance: HUMAN IMMUNOGLOBULIN G
     Indication: HISTIOCYTOSIS HAEMATOPHAGIC
     Dosage: UNK
     Route: 065
  7. INFLIXIMAB [Suspect]
     Active Substance: INFLIXIMAB
     Indication: EPSTEIN-BARR VIRUS INFECTION
  8. FOSCAVIR [Suspect]
     Active Substance: FOSCARNET SODIUM
     Indication: EPSTEIN-BARR VIRUS INFECTION
  9. IMMUNOGLOBULIN I.V [Suspect]
     Active Substance: HUMAN IMMUNOGLOBULIN G
     Indication: EPSTEIN-BARR VIRUS INFECTION
  10. FOSCAVIR [Suspect]
     Active Substance: FOSCARNET SODIUM
     Indication: HISTIOCYTOSIS HAEMATOPHAGIC
     Dosage: UNK
     Route: 065
  11. RITUXIMAB. [Suspect]
     Active Substance: RITUXIMAB
     Indication: HISTIOCYTOSIS HAEMATOPHAGIC
     Dosage: UNK
     Route: 065
  12. CIDOFOVIR. [Suspect]
     Active Substance: CIDOFOVIR
     Indication: HISTIOCYTOSIS HAEMATOPHAGIC
     Dosage: UNK
     Route: 065
  13. HUMAN IMMUNOGLBULIN [Suspect]
     Active Substance: HUMAN IMMUNOGLOBULIN G
     Indication: EPSTEIN-BARR VIRUS INFECTION
  14. IMMUNOGLOBULIN I.V [Suspect]
     Active Substance: HUMAN IMMUNOGLOBULIN G
     Indication: HISTIOCYTOSIS HAEMATOPHAGIC
     Dosage: UNK
     Route: 065

REACTIONS (5)
  - Drug ineffective for unapproved indication [Fatal]
  - Epstein-Barr virus infection [Unknown]
  - Multiple organ dysfunction syndrome [Fatal]
  - Histiocytosis haematophagic [Unknown]
  - Malignant neoplasm progression [Unknown]
